FAERS Safety Report 22135224 (Version 3)
Quarter: 2023Q2

REPORT INFORMATION
  Report Type: Spontaneous
  Country: GB (occurrence: GB)
  Receive Date: 20230324
  Receipt Date: 20230403
  Transmission Date: 20230722
  Serious: Yes (Other)
  Sender: FDA-Public Use
  Company Number: None

PATIENT
  Age: 59 Year
  Sex: Female

DRUGS (1)
  1. SILDENAFIL [Suspect]
     Active Substance: SILDENAFIL
     Indication: Product used for unknown indication
     Dosage: 25 MILLIGRAM, TID (3 PER DAY)
     Route: 065

REACTIONS (3)
  - Peripheral swelling [Recovering/Resolving]
  - Back pain [Recovered/Resolved]
  - Pain in extremity [Recovered/Resolved]
